FAERS Safety Report 24011834 (Version 2)
Quarter: 2025Q1

REPORT INFORMATION
  Report Type: Report from Study
  Country: US (occurrence: US)
  Receive Date: 20240625
  Receipt Date: 20250114
  Transmission Date: 20250409
  Serious: No
  Sender: MERCK
  Company Number: US-009507513-2406USA006796

PATIENT
  Sex: Male
  Weight: 68.027 kg

DRUGS (5)
  1. SOTATERCEPT [Suspect]
     Active Substance: SOTATERCEPT
     Indication: Pulmonary arterial hypertension
     Dosage: STRENGTH: 60 MG; 1 MILLILITER, Q3W
     Route: 058
     Dates: start: 202405
  2. REMODULIN [Suspect]
     Active Substance: TREPROSTINIL
     Indication: Pulmonary arterial hypertension
     Route: 058
     Dates: start: 202306
  3. REVATIO [Concomitant]
     Active Substance: SILDENAFIL CITRATE
  4. LETAIRIS [Concomitant]
     Active Substance: AMBRISENTAN
  5. ORENITRAM [Concomitant]
     Active Substance: TREPROSTINIL
     Dosage: 6.375 MILLIGRAM, TID USING 1-0.125MG + 1-0.25MG + 1-1MG + 1-5MG TABS

REACTIONS (5)
  - Gout [Unknown]
  - Pain [Recovered/Resolved]
  - Peripheral swelling [Unknown]
  - Headache [Unknown]
  - Pain in extremity [Unknown]

NARRATIVE: CASE EVENT DATE: 20240101
